FAERS Safety Report 8916792 (Version 2)
Quarter: 2013Q1

REPORT INFORMATION
  Report Type: Report from Study
  Country: JP (occurrence: JP)
  Receive Date: 20121120
  Receipt Date: 20130218
  Transmission Date: 20140127
  Serious: Yes (Hospitalization, Other)
  Sender: FDA-Public Use
  Company Number: JP-009507513-1211JPN007081

PATIENT
  Age: 68 Year
  Sex: Female
  Weight: 55 kg

DRUGS (20)
  1. PEGINTRON [Suspect]
     Indication: CHRONIC HEPATITIS C
     Dosage: 1.5 MICROGRAM PER KILOGRAM
     Route: 058
     Dates: start: 20120724, end: 20120731
  2. PEGINTRON [Suspect]
     Dosage: 0.75 MICROGRAM PER KILOGRAM
     Route: 058
     Dates: start: 20120807, end: 20120828
  3. PEGINTRON [Suspect]
     Dosage: 0.38 MICROGRAM PER KILOGRAM
     Route: 058
     Dates: start: 20120904, end: 20120904
  4. PEGINTRON [Suspect]
     Dosage: 0.75 MICROGRAM PER KILOGRAM
     Route: 058
     Dates: start: 20120911, end: 20120911
  5. PEGINTRON [Suspect]
     Dosage: 0.75 MICROGRAM PER KILOGRAM
     Route: 058
     Dates: start: 20121016, end: 20121016
  6. PEGINTRON [Suspect]
     Dosage: 0.9 MICROGRAM PER KILOGRAM
     Route: 058
     Dates: start: 20121023, end: 20121106
  7. PEGINTRON [Suspect]
     Dosage: 1.0 MICROGRAM PER KILOGRAM
     Route: 058
     Dates: start: 20121113, end: 20121113
  8. PEGINTRON [Suspect]
     Dosage: 1.3 MICROGRAM PER KILOGRAM
     Route: 058
     Dates: start: 20121120, end: 20121120
  9. PEGINTRON [Suspect]
     Dosage: 1.3 MICROGRAM PER KILOGRAM
     Route: 058
     Dates: start: 20121127, end: 20130129
  10. REBETOL [Suspect]
     Indication: CHRONIC HEPATITIS C
     Dosage: 600 MG, QD
     Route: 048
     Dates: start: 20120724, end: 20120806
  11. REBETOL [Suspect]
     Dosage: 400 MG, QD
     Route: 048
     Dates: start: 20120807, end: 20120903
  12. REBETOL [Suspect]
     Dosage: 200 MG, QD
     Route: 048
     Dates: start: 20120904, end: 20120917
  13. REBETOL [Suspect]
     Dosage: 200 MG, QD
     Route: 048
     Dates: start: 20121016, end: 20121022
  14. REBETOL [Suspect]
     Dosage: 400 MG, QD
     Route: 048
     Dates: start: 20121023, end: 20121105
  15. REBETOL [Suspect]
     Dosage: 200 MG, QD
     Route: 048
     Dates: start: 20121106, end: 20121126
  16. REBETOL [Suspect]
     Dosage: 400 MG, QD
     Route: 048
     Dates: start: 20121127, end: 20121217
  17. REBETOL [Suspect]
     Dosage: 300 MG, 200-400 MG QD ON ALTERNATE DAYS
     Route: 048
     Dates: start: 20121218, end: 20130204
  18. TELAVIC [Suspect]
     Indication: CHRONIC HEPATITIS C
     Dosage: 2250 MG, QD
     Route: 048
     Dates: start: 20120724, end: 20120820
  19. TELAVIC [Suspect]
     Dosage: 1500 MG, QD
     Route: 048
     Dates: start: 20120822, end: 20120924
  20. SELBEX [Concomitant]
     Indication: PROPHYLAXIS
     Dosage: 50 MG, QD
     Route: 048

REACTIONS (2)
  - Anaemia [Recovered/Resolved]
  - Haemoglobin decreased [Not Recovered/Not Resolved]
